FAERS Safety Report 6598623-7 (Version None)
Quarter: 2010Q1

REPORT INFORMATION
  Report Type: 
  Country: None (occurrence: None)
  Receive Date: 20100224
  Receipt Date: 20100211
  Transmission Date: 20100710
  Serious: Yes (Other)
  Sender: FDA-Public Use
  Company Number: US-BAYER-201013663NA

PATIENT
  Sex: Female

DRUGS (1)
  1. MIRENA [Suspect]
     Indication: MENORRHAGIA
     Dosage: FREQUENCY: CONTINUOUS
     Route: 015
     Dates: start: 20090801

REACTIONS (2)
  - BREAST CANCER [None]
  - DIABETES MELLITUS [None]
